FAERS Safety Report 4767809-6 (Version None)
Quarter: 2005Q3

REPORT INFORMATION
  Report Type: 
  Country: None (occurrence: None)
  Receive Date: 20050912
  Receipt Date: 20050901
  Transmission Date: 20060218
  Serious: Yes (Hospitalization)
  Sender: FDA-Public Use
  Company Number: 2005-132067-NL

PATIENT
  Age: 30 Year
  Sex: Female

DRUGS (6)
  1. FOLLITROPIN BETA [Suspect]
     Indication: IN VITRO FERTILISATION
     Dosage: 150 IU/125 IU
  2. NAFARELIN ACETATE [Suspect]
     Indication: IN VITRO FERTILISATION
     Dosage: DF NASAL
     Route: 045
  3. CHORIOGONADOTROPIN ALFA [Suspect]
     Indication: IN VITRO FERTILISATION
     Dosage: 6500 IU
  4. PROGESTERONE [Suspect]
     Indication: IN VITRO FERTILISATION
     Dosage: DF
  5. LIDOCAINE [Concomitant]
  6. PETHIDINE [Concomitant]

REACTIONS (11)
  - HYDRONEPHROSIS [None]
  - NAUSEA [None]
  - OLIGURIA [None]
  - OVARIAN DISORDER [None]
  - OVARIAN ENLARGEMENT [None]
  - PROCEDURAL COMPLICATION [None]
  - PROCEDURAL PAIN [None]
  - RENAL FAILURE ACUTE [None]
  - THERAPY NON-RESPONDER [None]
  - URETERAL DISORDER [None]
  - VOMITING [None]
